FAERS Safety Report 8430492-2 (Version None)
Quarter: 2012Q2

REPORT INFORMATION
  Report Type: 
  Country: None (occurrence: None)
  Receive Date: 20120612
  Receipt Date: 20120529
  Transmission Date: 20120825
  Serious: Yes (Other)
  Sender: FDA-Public Use
  Company Number: IL-JNJFOC-20120603926

PATIENT

DRUGS (4)
  1. TRIMETHOPRIM + SULFAMETHOXAZOLE [Suspect]
     Indication: PRODUCT USED FOR UNKNOWN INDICATION
     Route: 065
  2. CLADRIBINE [Suspect]
     Indication: HAIRY CELL LEUKAEMIA
     Dosage: 0.1MG/KG FOR 5 DAYS (2 HR INFUSION) OR 7 DAYS (CONTINUOUS INFUSION)
     Route: 042
  3. PENICILLIN [Suspect]
     Indication: FEBRILE NEUTROPENIA
     Route: 065
  4. GRANULOCYTE COLONY STIMULATING FACTOR [Concomitant]
     Indication: FEBRILE NEUTROPENIA
     Route: 065

REACTIONS (4)
  - TYPE IV HYPERSENSITIVITY REACTION [None]
  - PYREXIA [None]
  - DERMATITIS [None]
  - LYMPHOPENIA [None]
